FAERS Safety Report 13654089 (Version 1)
Quarter: 2017Q2

REPORT INFORMATION
  Report Type: Spontaneous
  Country: FR (occurrence: FR)
  Receive Date: 20170614
  Receipt Date: 20170614
  Transmission Date: 20170830
  Serious: Yes (Other)
  Sender: FDA-Public Use
  Company Number: FR-ABBVIE-17P-056-2007625-00

PATIENT
  Age: 24 Year
  Sex: Male

DRUGS (4)
  1. LIORESAL [Suspect]
     Active Substance: BACLOFEN
     Indication: PARAPARESIS
     Route: 048
     Dates: start: 201503
  2. DEPAKINE CHRONO [Suspect]
     Active Substance: VALPROATE SODIUM
     Route: 048
  3. DEPAKINE CHRONO [Suspect]
     Active Substance: VALPROATE SODIUM
     Indication: PARTIAL SEIZURES
     Route: 048
     Dates: start: 201608
  4. URBANYL [Suspect]
     Active Substance: CLOBAZAM
     Indication: PARTIAL SEIZURES
     Route: 048
     Dates: start: 201608, end: 20170406

REACTIONS (8)
  - Dysphonia [Unknown]
  - Tremor [Unknown]
  - Dysarthria [Unknown]
  - Thrombocytopenia [Unknown]
  - Weight increased [Unknown]
  - Hepatocellular injury [Unknown]
  - Alopecia [Unknown]
  - Hypokinesia [Unknown]

NARRATIVE: CASE EVENT DATE: 20170118
